FAERS Safety Report 14334294 (Version 1)
Quarter: 2017Q4

REPORT INFORMATION
  Report Type: Spontaneous
  Country: US (occurrence: US)
  Receive Date: 20171228
  Receipt Date: 20171228
  Transmission Date: 20180321
  Serious: Yes (Life-Threatening, Disabling, Other)
  Sender: FDA-Public Use
  Company Number: US-PFIZER INC-2017547622

PATIENT
  Age: 35 Year
  Sex: Female
  Weight: 97.5 kg

DRUGS (22)
  1. DULOXETINE. [Concomitant]
     Active Substance: DULOXETINE
     Dosage: UNK
     Dates: start: 2015
  2. LISINOPRIL. [Concomitant]
     Active Substance: LISINOPRIL
     Dosage: 40 MG, 2X/DAY
     Dates: start: 201710
  3. T3 [Concomitant]
     Active Substance: LIOTHYRONINE SODIUM
     Dosage: UNK
  4. LISINOPRIL. [Concomitant]
     Active Substance: LISINOPRIL
     Dosage: UNK
     Dates: start: 2000, end: 201710
  5. HYDROCODONE [Suspect]
     Active Substance: HYDROCODONE
     Indication: PAIN
     Dosage: UNK
  6. METHOTREXATE. [Suspect]
     Active Substance: METHOTREXATE
     Dosage: UNK
     Route: 048
  7. MORPHINE [Suspect]
     Active Substance: MORPHINE
     Indication: PAIN
     Dosage: UNK
     Route: 048
  8. XYZAL [Concomitant]
     Active Substance: LEVOCETIRIZINE DIHYDROCHLORIDE
     Dosage: UNK
     Dates: start: 201707
  9. TYLENOL [Suspect]
     Active Substance: ACETAMINOPHEN
     Indication: PAIN
     Dosage: UNK
  10. LEVOTHROID [Suspect]
     Active Substance: LEVOTHYROXINE SODIUM
     Indication: HYPOTHYROIDISM
     Dosage: UNK
  11. ARAVA [Suspect]
     Active Substance: LEFLUNOMIDE
     Indication: BLOOD PRESSURE ABNORMAL
     Dosage: UNK
     Route: 048
     Dates: end: 201710
  12. BYDUREON [Concomitant]
     Active Substance: EXENATIDE
     Dosage: UNK
  13. ARMOUR THYROID [Suspect]
     Active Substance: THYROID, PORCINE
     Indication: HYPOTHYROIDISM
     Dosage: UNK
     Route: 048
  14. LYRICA [Concomitant]
     Active Substance: PREGABALIN
     Dosage: UNK
     Dates: start: 2017
  15. SYNTHROID [Suspect]
     Active Substance: LEVOTHYROXINE SODIUM
     Indication: HYPOTHYROIDISM
     Dosage: UNK
  16. SINGULAIR [Concomitant]
     Active Substance: MONTELUKAST SODIUM
     Dosage: UNK
     Dates: start: 2015
  17. HYDROCHLOROTHIAZIDE. [Concomitant]
     Active Substance: HYDROCHLOROTHIAZIDE
     Dosage: UNK
  18. ORENCIA [Concomitant]
     Active Substance: ABATACEPT
     Dosage: UNK
  19. ENBREL [Suspect]
     Active Substance: ETANERCEPT
     Dosage: UNK
  20. XELJANZ XR [Suspect]
     Active Substance: TOFACITINIB CITRATE
     Indication: RHEUMATOID ARTHRITIS
     Dosage: 11 MG, 1X/DAY
     Route: 048
     Dates: start: 2017
  21. PLAQUENIL [Concomitant]
     Active Substance: HYDROXYCHLOROQUINE SULFATE
     Dosage: UNK
     Dates: start: 2012
  22. PREDNISONE. [Concomitant]
     Active Substance: PREDNISONE
     Dosage: UNK
     Dates: start: 2015

REACTIONS (20)
  - Finger deformity [Unknown]
  - Oedema peripheral [Unknown]
  - Pain [Unknown]
  - Blood potassium decreased [Unknown]
  - Weight decreased [Unknown]
  - Scar [Unknown]
  - Pain in extremity [Unknown]
  - Skin haemorrhage [Unknown]
  - Bone cyst [Not Recovered/Not Resolved]
  - Musculoskeletal pain [Unknown]
  - Blood pressure increased [Recovering/Resolving]
  - Fibromyalgia [Not Recovered/Not Resolved]
  - Drug effect decreased [Unknown]
  - Pruritus [Unknown]
  - Skin ulcer [Unknown]
  - Vascular injury [Unknown]
  - Arthralgia [Unknown]
  - Condition aggravated [Not Recovered/Not Resolved]
  - Blood sodium decreased [Unknown]
  - Nail growth abnormal [Unknown]

NARRATIVE: CASE EVENT DATE: 1995
